FAERS Safety Report 9105138 (Version 1)
Quarter: 2013Q1

REPORT INFORMATION
  Report Type: Spontaneous
  Country: GB (occurrence: GB)
  Receive Date: 20130220
  Receipt Date: 20130220
  Transmission Date: 20140127
  Serious: Yes (Other)
  Sender: FDA-Public Use
  Company Number: GB-BRACCO-000676

PATIENT
  Age: 52 Year
  Sex: Male
  Weight: 100 kg

DRUGS (7)
  1. RAMIPRIL [Concomitant]
  2. IOPAMIDOL [Suspect]
     Indication: ARTERIOGRAM CORONARY
     Route: 051
     Dates: start: 20130116, end: 20130116
  3. BISOPROLOL [Concomitant]
  4. ASPIRIN [Concomitant]
  5. AZATHIOPRINE [Concomitant]
  6. LAXIDO [Concomitant]
  7. FLECAINIDE [Concomitant]

REACTIONS (5)
  - Diplopia [Recovered/Resolved]
  - Migraine [Recovered/Resolved]
  - Scintillating scotoma [Recovered/Resolved]
  - Muscle twitching [Recovered/Resolved]
  - Visual impairment [Recovered/Resolved]
